FAERS Safety Report 5718800-4 (Version None)
Quarter: 2008Q2

REPORT INFORMATION
  Report Type: 
  Country: None (occurrence: None)
  Receive Date: 20080425
  Receipt Date: 20080401
  Transmission Date: 20081010
  Serious: No
  Sender: FDA-Public Use
  Company Number: US-BOEHRINGER INGELHEIM GMBH, GERMANY-2008-BP-05047BP

PATIENT
  Sex: Male

DRUGS (4)
  1. ZANTAC 75 [Suspect]
     Indication: DYSPEPSIA
     Route: 048
     Dates: start: 20060101
  2. DOXEPIN HCL [Concomitant]
  3. CIPRO [Concomitant]
  4. LORTAB [Concomitant]

REACTIONS (1)
  - RASH GENERALISED [None]
